FAERS Safety Report 9432828 (Version 2)
Quarter: 2013Q3

REPORT INFORMATION
  Report Type: Spontaneous
  Country: US (occurrence: US)
  Receive Date: 20130731
  Receipt Date: 20130908
  Transmission Date: 20140515
  Serious: Yes (Hospitalization)
  Sender: FDA-Public Use
  Company Number: US-SANOFI-AVENTIS-2013SA075703

PATIENT
  Age: 65 Year
  Sex: Female
  Weight: 95 kg

DRUGS (5)
  1. LASIX [Suspect]
     Indication: BURSITIS
     Route: 065
  2. NITROSTAT [Suspect]
     Indication: CARDIAC DISORDER
     Dosage: ABOUT 20 YEARS
     Route: 065
  3. NITROSTAT [Suspect]
     Indication: CHEST PAIN
     Dosage: ABOUT 20 YEARS
     Route: 065
  4. TIKOSYN [Suspect]
     Indication: ATRIAL FIBRILLATION
     Route: 065
     Dates: start: 201112
  5. LORTAB [Concomitant]
     Indication: ARTHRITIS
     Route: 065

REACTIONS (2)
  - Cardiac failure congestive [Unknown]
  - Fluid retention [Unknown]
